FAERS Safety Report 8956600 (Version 2)
Quarter: 2013Q1

REPORT INFORMATION
  Report Type: Spontaneous
  Country: US (occurrence: US)
  Receive Date: 20121210
  Receipt Date: 20130206
  Transmission Date: 20140127
  Serious: Yes (Disabling, Other)
  Sender: FDA-Public Use
  Company Number: US-JNJFOC-20121115204

PATIENT
  Sex: Male
  Weight: 84.82 kg

DRUGS (4)
  1. REMICADE [Suspect]
     Indication: CROHN^S DISEASE
     Route: 042
     Dates: start: 20120919
  2. REMICADE [Suspect]
     Indication: CROHN^S DISEASE
     Route: 042
     Dates: start: 201011
  3. LISINOPRIL [Concomitant]
     Indication: HYPERTENSION
     Route: 065
  4. ATENOLOL [Concomitant]
     Indication: HYPERTENSION
     Route: 065

REACTIONS (3)
  - Eczema [Recovering/Resolving]
  - Staphylococcal skin infection [Recovering/Resolving]
  - Gastrointestinal disorder [Not Recovered/Not Resolved]
